FAERS Safety Report 7534932-2 (Version None)
Quarter: 2011Q2

REPORT INFORMATION
  Report Type: 
  Country: None (occurrence: None)
  Receive Date: 20110609
  Receipt Date: 20110601
  Transmission Date: 20111010
  Serious: Yes (Hospitalization)
  Sender: FDA-Public Use
  Company Number: US-BIOGENIDEC-2011BI020278

PATIENT
  Age: 29 Year
  Sex: Female

DRUGS (1)
  1. AVONEX [Suspect]
     Indication: MULTIPLE SCLEROSIS
     Route: 030
     Dates: start: 20100825

REACTIONS (10)
  - HYPOAESTHESIA [None]
  - MUSCLE SPASMS [None]
  - BURNING SENSATION [None]
  - TREMOR [None]
  - TEARFULNESS [None]
  - INSOMNIA [None]
  - FALL [None]
  - AGRAPHIA [None]
  - PARAESTHESIA [None]
  - BALANCE DISORDER [None]
